FAERS Safety Report 5519478-5 (Version None)
Quarter: 2007Q4

REPORT INFORMATION
  Report Type: 
  Country: None (occurrence: None)
  Receive Date: 20071114
  Receipt Date: 20071031
  Transmission Date: 20080405
  Serious: Yes (Other)
  Sender: FDA-Public Use
  Company Number: 100#03#2007-04614

PATIENT
  Age: 64 Year
  Sex: Male

DRUGS (10)
  1. METRONIDAZOLE [Suspect]
     Indication: WOUND INFECTION
     Dosage: 400 MG THREE TIMES A DAY ORAL
     Route: 048
     Dates: start: 20070726, end: 20070802
  2. AMOXICILLIN + CLAVULANATE POTASSIUM [Suspect]
     Indication: WOUND INFECTION
     Dosage: ORAL
     Route: 048
     Dates: start: 20070726, end: 20070802
  3. ALLOPURINOL (ALLOPURINOL) (ALLOPURINOL) [Concomitant]
  4. CORACTEN XL (NIFEDIPINE) (NIFEDIPINE) [Concomitant]
  5. DIGOXIN [Concomitant]
  6. GAVISCON ADVANCE (GAVISCON ADVANCE) (POTASSIUM BICARBONATE, SODIUM ALG [Concomitant]
  7. IRBESARTAN (IRBESARTAN) (IRBESARTAN) [Concomitant]
  8. PARACETAMOL (PARACETAMOL) (PARACETAMOL) [Concomitant]
  9. SIMVASTATIN [Concomitant]
  10. WARFARIN SODIUM [Concomitant]

REACTIONS (1)
  - HEPATITIS [None]
